FAERS Safety Report 10207079 (Version 2)
Quarter: 2014Q2

REPORT INFORMATION
  Report Type: Spontaneous
  Country: US (occurrence: US)
  Receive Date: 20140530
  Receipt Date: 20140616
  Transmission Date: 20141212
  Serious: Yes (Other)
  Sender: FDA-Public Use
  Company Number: US-SA-2014SA067655

PATIENT
  Age: 57 Year
  Sex: Female

DRUGS (5)
  1. LANTUS SOLOSTAR [Suspect]
     Indication: TYPE 1 DIABETES MELLITUS
     Dosage: DOSE:20 UNIT(S)
     Route: 065
     Dates: start: 200908
  2. SOLOSTAR [Suspect]
     Indication: TYPE 1 DIABETES MELLITUS
     Dates: start: 200908
  3. NOVOLOG [Concomitant]
  4. CRESTOR [Concomitant]
     Indication: BLOOD CHOLESTEROL INCREASED
     Dates: start: 20140419
  5. COZAAR [Concomitant]
     Indication: HYPERTENSION
     Dates: start: 20140521

REACTIONS (3)
  - Cataract [Unknown]
  - Blindness [Unknown]
  - Blood glucose increased [Unknown]
